FAERS Safety Report 9699537 (Version 2)
Quarter: 2013Q4

REPORT INFORMATION
  Report Type: Spontaneous
  Country: US (occurrence: US)
  Receive Date: 20131120
  Receipt Date: 20131125
  Transmission Date: 20140711
  Serious: No
  Sender: FDA-Public Use
  Company Number: US-TEVA-369787USA

PATIENT
  Sex: Female

DRUGS (10)
  1. PARAGARD 380A [Suspect]
     Indication: CONTRACEPTION
     Route: 015
  2. ADDERALL [Concomitant]
  3. WELLBUTRIN [Concomitant]
  4. ACYCLOVIR [Concomitant]
  5. MVI [Concomitant]
  6. FISH OIL [Concomitant]
  7. VITAMIN D [Concomitant]
  8. MELATONIN [Concomitant]
  9. CARNITINE [Concomitant]
  10. FLAXSEED OIL [Concomitant]

REACTIONS (6)
  - Arthralgia [Recovering/Resolving]
  - Mood altered [Recovering/Resolving]
  - Fatigue [Recovering/Resolving]
  - Pain [Recovering/Resolving]
  - Musculoskeletal stiffness [Recovering/Resolving]
  - Orgasmic sensation decreased [Recovering/Resolving]
